FAERS Safety Report 11969426 (Version 1)
Quarter: 2016Q1

REPORT INFORMATION
  Report Type: Spontaneous
  Country: US (occurrence: US)
  Receive Date: 20160128
  Receipt Date: 20160128
  Transmission Date: 20160526
  Serious: Yes (Other)
  Sender: FDA-Public Use
  Company Number: US-FRESENIUS KABI-FK201600400

PATIENT
  Age: 52 Year
  Sex: Male

DRUGS (3)
  1. ACYCLOVIR SODIUM (MANUFACTURER UNKNOWN) (ACYCLOVIR SODIUM) (ACYCLOVIR SODIUM) [Suspect]
     Active Substance: ACYCLOVIR SODIUM
     Indication: EVIDENCE BASED TREATMENT
     Route: 042
  2. VALACYCLOVIR [Suspect]
     Active Substance: VALACYCLOVIR HYDROCHLORIDE
     Indication: HERPES ZOSTER
     Route: 048
  3. LABETALOL [Concomitant]
     Active Substance: LABETALOL\LABETALOL HYDROCHLORIDE
     Indication: BLOOD PRESSURE MANAGEMENT
     Route: 042

REACTIONS (3)
  - Neurotoxicity [Recovered/Resolved]
  - Status epilepticus [Recovered/Resolved]
  - Seizure [Recovered/Resolved]
